FAERS Safety Report 5718915-0 (Version None)
Quarter: 2008Q2

REPORT INFORMATION
  Report Type: 
  Country: None (occurrence: None)
  Receive Date: 20080425
  Receipt Date: 20080416
  Transmission Date: 20081010
  Serious: Yes (Other)
  Sender: FDA-Public Use
  Company Number: JP-MERCK-0804USA03983

PATIENT
  Age: 80 Year
  Sex: Female
  Weight: 50 kg

DRUGS (1)
  1. FOSAMAX [Suspect]
     Route: 048
     Dates: end: 20080414

REACTIONS (2)
  - OSTEONECROSIS [None]
  - PERIODONTITIS [None]
